FAERS Safety Report 8301399 (Version 3)
Quarter: 2013Q2

REPORT INFORMATION
  Report Type: Spontaneous
  Country: US (occurrence: US)
  Receive Date: 20111219
  Receipt Date: 20130426
  Transmission Date: 20140414
  Serious: Yes (Hospitalization, Other)
  Sender: FDA-Public Use
  Company Number: US-RB-035343-11

PATIENT
  Age: 1 Day
  Sex: Female

DRUGS (6)
  1. SUBUTEX [Suspect]
     Indication: DRUG DEPENDENCE
     Route: 064
     Dates: start: 20110422, end: 20110519
  2. SUBUTEX [Suspect]
     Route: 064
     Dates: start: 20110520, end: 20110729
  3. SUBUTEX [Suspect]
     Route: 064
     Dates: start: 20110730, end: 20111201
  4. SUBOXONE FILM [Suspect]
     Indication: DRUG DEPENDENCE
     Dosage: SUBOXONE FILM
     Route: 064
     Dates: start: 20110401, end: 20110421
  5. ATIVAN [Suspect]
     Indication: ANXIETY
     Dosage: 2 MG AM, 2 MG PM
     Route: 064
     Dates: start: 20111020, end: 20111201
  6. NICOTINE [Suspect]
     Indication: TOBACCO USER
     Dosage: 6 CIGARETTES PER DAY
     Route: 064
     Dates: start: 2011, end: 20111201

REACTIONS (6)
  - Foetal exposure during pregnancy [Recovered/Resolved]
  - Dehydration [Unknown]
  - Drug withdrawal syndrome neonatal [Recovered/Resolved]
  - Weight decrease neonatal [Recovered/Resolved]
  - Diarrhoea [Recovered/Resolved]
  - Irritability [Recovered/Resolved]
